FAERS Safety Report 9207199 (Version 1)
Quarter: 2013Q2

REPORT INFORMATION
  Report Type: Spontaneous
  Country: CA (occurrence: CA)
  Receive Date: 20130403
  Receipt Date: 20130403
  Transmission Date: 20140414
  Serious: Yes (Other)
  Sender: FDA-Public Use
  Company Number: CA-JNJFOC-20120202242

PATIENT
  Age: 35 Year
  Sex: Female

DRUGS (5)
  1. REMICADE [Suspect]
     Indication: CROHN^S DISEASE
     Route: 042
  2. BENADRYL [Suspect]
     Indication: PRODUCT USED FOR UNKNOWN INDICATION
     Route: 065
  3. CORTISON [Concomitant]
     Indication: PREMEDICATION
     Route: 042
  4. ATIVAN [Concomitant]
     Indication: PREMEDICATION
     Route: 060
  5. BENADRYL [Concomitant]
     Indication: PREMEDICATION
     Route: 042

REACTIONS (5)
  - Tremor [Recovered/Resolved]
  - Pruritus [Unknown]
  - Anxiety [Unknown]
  - Arthralgia [Unknown]
  - Infusion related reaction [Unknown]
